FAERS Safety Report 7353808-7 (Version None)
Quarter: 2011Q1

REPORT INFORMATION
  Report Type: 
  Country: None (occurrence: None)
  Receive Date: 20110315
  Receipt Date: 20101029
  Transmission Date: 20110831
  Serious: No
  Sender: FDA-Public Use
  Company Number: US-BAYER-201023287BCC

PATIENT
  Sex: Male

DRUGS (1)
  1. ALEVE [Suspect]
     Indication: PYREXIA
     Dosage: BOTTLE COUNT 100S
     Route: 048
     Dates: start: 20101029

REACTIONS (1)
  - NO ADVERSE EVENT [None]
